FAERS Safety Report 24300631 (Version 1)
Quarter: 2024Q3

REPORT INFORMATION
  Report Type: Spontaneous
  Country: US (occurrence: US)
  Receive Date: 20240910
  Receipt Date: 20240910
  Transmission Date: 20241016
  Serious: Yes (Death, Hospitalization)
  Sender: ASTELLAS
  Company Number: US-ROCHE-10000070729

PATIENT
  Sex: Female

DRUGS (3)
  1. ERLOTINIB [Suspect]
     Active Substance: ERLOTINIB
     Indication: Non-small cell lung cancer
     Route: 065
  2. SELUMETINIB [Suspect]
     Active Substance: SELUMETINIB
     Indication: Non-small cell lung cancer
     Route: 065
  3. SORAFENIB [Suspect]
     Active Substance: SORAFENIB
     Indication: Non-small cell lung cancer
     Route: 065

REACTIONS (1)
  - Dyspnoea [Fatal]

NARRATIVE: CASE EVENT DATE: 20130827
